FAERS Safety Report 8105447 (Version 3)
Quarter: 2013Q2

REPORT INFORMATION
  Report Type: Spontaneous
  Country: JP (occurrence: JP)
  Receive Date: 20110825
  Receipt Date: 20130528
  Transmission Date: 20140414
  Serious: Yes (Death)
  Sender: FDA-Public Use
  Company Number: JP-BAYER-2011-076934

PATIENT
  Age: 12 Year
  Sex: Male

DRUGS (14)
  1. NEXAVAR [Suspect]
     Indication: ACUTE MYELOID LEUKAEMIA
     Dosage: 200 MG, BID
     Route: 048
     Dates: start: 20110711, end: 20110821
  2. FLUDARABINE PHOSPHATE [Concomitant]
     Indication: ACUTE MYELOID LEUKAEMIA
     Dosage: DAILY DOSE 120 MG/KG
  3. CYTARABINE [Concomitant]
     Indication: ACUTE MYELOID LEUKAEMIA
     Dosage: DAILY DOSE 300 MG
  4. G-CSF [Concomitant]
     Indication: ACUTE MYELOID LEUKAEMIA
  5. IDARUBICIN HYDROCHLORIDE [Concomitant]
     Indication: ACUTE MYELOID LEUKAEMIA
  6. GEMTUZUMAB OZOGAMICIN [Concomitant]
     Indication: ACUTE MYELOID LEUKAEMIA
     Dosage: DAILY DOSE 3 MG/M2
  7. CYCLOPHOSPHAMIDE [Concomitant]
     Indication: PREMEDICATION
     Dosage: DAILY DOSE 120 MG/KG
  8. CYCLOPHOSPHAMIDE [Concomitant]
     Indication: BONE MARROW TRANSPLANT
  9. ATG [ANTITHYMOCYTE IMMUNOGLOBULIN (RABBIT)] [Concomitant]
     Indication: BONE MARROW TRANSPLANT
     Dosage: DAILY DOSE 10 MG/KG
  10. FK 506 [Concomitant]
     Indication: PROPHYLAXIS AGAINST GRAFT VERSUS HOST DISEASE
  11. METHOTREXATE [Concomitant]
     Indication: PROPHYLAXIS AGAINST GRAFT VERSUS HOST DISEASE
  12. RITUXIMAB [Concomitant]
     Indication: POST TRANSPLANT LYMPHOPROLIFERATIVE DISORDER
  13. VP-16 [Concomitant]
     Indication: ACUTE MYELOID LEUKAEMIA
     Dosage: DAILY DOSE 50 MG
  14. VP-16 [Concomitant]
     Indication: ACUTE MYELOID LEUKAEMIA
     Dosage: DAILY DOSE 100 MG

REACTIONS (4)
  - Acute myeloid leukaemia [Fatal]
  - Respiratory failure [Fatal]
  - Rash erythematous [None]
  - Off label use [None]
